FAERS Safety Report 11547599 (Version 1)
Quarter: 2015Q3

REPORT INFORMATION
  Report Type: Spontaneous
  Country: BR (occurrence: BR)
  Receive Date: 20150924
  Receipt Date: 20150924
  Transmission Date: 20151125
  Serious: Yes (Hospitalization)
  Sender: FDA-Public Use
  Company Number: BR-JNJFOC-20150908017

PATIENT
  Age: 22 Month
  Sex: Female

DRUGS (2)
  1. INFANTS TYLENOL [Suspect]
     Active Substance: ACETAMINOPHEN
     Indication: PYREXIA
     Route: 065
     Dates: start: 20150826, end: 2015
  2. INFANTS TYLENOL [Suspect]
     Active Substance: ACETAMINOPHEN
     Indication: PHARYNGITIS
     Route: 065
     Dates: start: 20150826, end: 2015

REACTIONS (9)
  - Eye movement disorder [Unknown]
  - Decreased immune responsiveness [Unknown]
  - Peripheral coldness [Unknown]
  - Type 1 diabetes mellitus [Unknown]
  - Malaise [Unknown]
  - Hypotension [Unknown]
  - Hyperglycaemia [Recovered/Resolved]
  - Hypothermia [Unknown]
  - Pancreatic disorder [Unknown]

NARRATIVE: CASE EVENT DATE: 2015
